FAERS Safety Report 7063573-9 (Version None)
Quarter: 2010Q4

REPORT INFORMATION
  Report Type: 
  Country: None (occurrence: None)
  Receive Date: 20101026
  Receipt Date: 20101008
  Transmission Date: 20110411
  Serious: Yes (Other)
  Sender: FDA-Public Use
  Company Number: GB-AMGEN-QUU442122

PATIENT

DRUGS (1)
  1. NEULASTA [Suspect]
     Indication: NEUTROPENIA
     Dosage: UNK UNK, UNK
     Route: 065
     Dates: start: 20100910

REACTIONS (5)
  - ANAPHYLACTIC REACTION [None]
  - LIP SWELLING [None]
  - RASH GENERALISED [None]
  - SWOLLEN TONGUE [None]
  - VOMITING [None]
